FAERS Safety Report 5211067-5 (Version None)
Quarter: 2006Q4

REPORT INFORMATION
  Report Type: 
  Country: None (occurrence: None)
  Receive Date: 20061114
  Receipt Date: 20060724
  Transmission Date: 20070319
  Serious: No
  Sender: FDA-Public Use
  Company Number: S06-USA-02924-01

PATIENT
  Age: 88 Year
  Sex: Female

DRUGS (11)
  1. NAMENDA [Suspect]
     Indication: MEMORY IMPAIRMENT
     Dosage: 15 MG QD PO
     Route: 048
     Dates: start: 20060709, end: 20060715
  2. NAMENDA [Suspect]
     Indication: MEMORY IMPAIRMENT
     Dosage: 10 MG BID PO
     Route: 048
     Dates: start: 20060716
  3. NAMENDA [Suspect]
     Indication: MEMORY IMPAIRMENT
     Dosage: 5 MG QD PO
     Route: 048
     Dates: start: 20060625, end: 20060701
  4. NAMENDA [Suspect]
     Indication: MEMORY IMPAIRMENT
     Dosage: 5 MG BID PO
     Route: 048
     Dates: start: 20060702, end: 20060708
  5. VERAPAMIL [Concomitant]
  6. SODIUM BICARBONATE [Concomitant]
  7. DIGOXIN [Concomitant]
  8. ALLOPURINOL SODIUM [Concomitant]
  9. SYNTHROID [Concomitant]
  10. CALCITRIOL [Concomitant]
  11. RENAGEL [Concomitant]

REACTIONS (1)
  - MEMORY IMPAIRMENT [None]
